FAERS Safety Report 4318711-5 (Version None)
Quarter: 2004Q1

REPORT INFORMATION
  Report Type: 
  Country: None (occurrence: None)
  Receive Date: 20040316
  Receipt Date: 20040316
  Transmission Date: 20041129
  Serious: Yes (Other)
  Sender: FDA-Public Use
  Company Number: None

PATIENT
  Age: 59 Year
  Sex: Female

DRUGS (1)
  1. PEPCID [Suspect]
     Dosage: ONE PO QD
     Route: 048

REACTIONS (4)
  - NAUSEA [None]
  - OROPHARYNGEAL SWELLING [None]
  - PHARMACEUTICAL PRODUCT COMPLAINT [None]
  - RASH [None]
